FAERS Safety Report 4611626-4 (Version None)
Quarter: 2005Q2

REPORT INFORMATION
  Report Type: 
  Country: None (occurrence: None)
  Receive Date: 20050311
  Receipt Date: 20050111
  Transmission Date: 20051028
  Serious: No
  Sender: FDA-Public Use
  Company Number: 2005-BP-00483BP

PATIENT
  Sex: Female

DRUGS (11)
  1. SPIRIVA [Suspect]
     Indication: CHRONIC OBSTRUCTIVE PULMONARY DISEASE
     Dosage: 18 MCG (18 MCG), IH
     Route: 055
     Dates: start: 20040701
  2. SPIRIVA [Suspect]
  3. OXYGEN (OXYGEN) [Concomitant]
  4. MOBIC [Concomitant]
  5. CARDIZEM (DILTIAZAM HYDROCHLORIDE) [Concomitant]
  6. PROZAC [Concomitant]
  7. NITROGLYCERIN [Concomitant]
  8. HYDROCHLOROTHIAZIDE [Concomitant]
  9. HYDROCODONE BITARTRATE [Concomitant]
  10. HYOSCYAMINE (HYOSCYAMINE) [Concomitant]
  11. FLUORETINE [Concomitant]

REACTIONS (5)
  - BALANCE DISORDER [None]
  - BLOOD PRESSURE DECREASED [None]
  - DIZZINESS [None]
  - DYSPNOEA [None]
  - FATIGUE [None]
